FAERS Safety Report 17291017 (Version 1)
Quarter: 2020Q1

REPORT INFORMATION
  Report Type: Report from Study
  Country: US (occurrence: US)
  Receive Date: 20200121
  Receipt Date: 20200121
  Transmission Date: 20200409
  Serious: Yes (Other)
  Sender: FDA-Public Use
  Company Number: US-BAYER-2019-188091

PATIENT
  Age: 59 Year
  Sex: Female

DRUGS (5)
  1. STIVARGA [Suspect]
     Active Substance: REGORAFENIB
     Indication: COLORECTAL CANCER
     Dosage: 160 MG, QD
     Route: 048
     Dates: start: 20191021, end: 20191231
  2. STIVARGA [Suspect]
     Active Substance: REGORAFENIB
     Indication: COLORECTAL CANCER
     Dosage: DAILY DOSE 80 MG
     Route: 048
     Dates: start: 20200106, end: 20200106
  3. STIVARGA [Suspect]
     Active Substance: REGORAFENIB
     Indication: COLORECTAL CANCER
     Dosage: DAILY DOSE 160 MG
     Route: 048
     Dates: start: 20200107, end: 202001
  4. STIVARGA [Suspect]
     Active Substance: REGORAFENIB
     Indication: COLORECTAL CANCER
     Dosage: DAILY DOSE 80 MG
     Route: 048
     Dates: start: 20191007, end: 201910
  5. STIVARGA [Suspect]
     Active Substance: REGORAFENIB
     Indication: COLORECTAL CANCER
     Dosage: DAILY DOSE 120 MG
     Route: 048
     Dates: start: 20191014, end: 201910

REACTIONS (35)
  - Haematochezia [Not Recovered/Not Resolved]
  - Pain in extremity [Not Recovered/Not Resolved]
  - Erythema [Not Recovered/Not Resolved]
  - Tongue erythema [Not Recovered/Not Resolved]
  - Headache [Not Recovered/Not Resolved]
  - Abdominal pain upper [Recovering/Resolving]
  - Flatulence [None]
  - White blood cell count decreased [Not Recovered/Not Resolved]
  - Tumour marker increased [Not Recovered/Not Resolved]
  - Eructation [Not Recovered/Not Resolved]
  - Fatigue [Recovering/Resolving]
  - Glossodynia [Not Recovered/Not Resolved]
  - Red blood cell count decreased [Not Recovered/Not Resolved]
  - Balance disorder [Not Recovered/Not Resolved]
  - Skin exfoliation [Not Recovered/Not Resolved]
  - Nail discolouration [Not Recovered/Not Resolved]
  - Nail growth abnormal [Not Recovered/Not Resolved]
  - Dyspepsia [Not Recovered/Not Resolved]
  - Abdominal discomfort [Not Recovered/Not Resolved]
  - Blood pressure fluctuation [Not Recovered/Not Resolved]
  - Asthenia [Not Recovered/Not Resolved]
  - Blood pressure increased [Not Recovered/Not Resolved]
  - Dysarthria [Not Recovered/Not Resolved]
  - Hyperkeratosis [Not Recovered/Not Resolved]
  - Dysphonia [Not Recovered/Not Resolved]
  - Off label use [Not Recovered/Not Resolved]
  - Tongue eruption [Not Recovered/Not Resolved]
  - Faeces hard [Not Recovered/Not Resolved]
  - Haemoglobin decreased [Not Recovered/Not Resolved]
  - Heart rate increased [Not Recovered/Not Resolved]
  - Weight decreased [Not Recovered/Not Resolved]
  - Diarrhoea [Not Recovered/Not Resolved]
  - Peripheral swelling [Not Recovered/Not Resolved]
  - Platelet count decreased [Not Recovered/Not Resolved]
  - Haematocrit decreased [Not Recovered/Not Resolved]

NARRATIVE: CASE EVENT DATE: 20191007
